FAERS Safety Report 9203986 (Version 1)
Quarter: 2013Q1

REPORT INFORMATION
  Report Type: Spontaneous
  Country: US (occurrence: None)
  Receive Date: 20130329
  Receipt Date: 20130329
  Transmission Date: 20140127
  Serious: Yes (Life-Threatening)
  Sender: FDA-Public Use
  Company Number: None

PATIENT
  Age: 74 Year
  Sex: Male
  Weight: 72.58 kg

DRUGS (9)
  1. NEUPRO [Suspect]
     Indication: RESTLESS LEGS SYNDROME
     Dosage: 1 MG/24 HRS DAILY 061
     Dates: start: 201209
  2. ROPINIROLE ER (REQUIP XL) [Concomitant]
  3. ROPINIROLE (REQUIP) [Concomitant]
  4. ZOLPIDEM (AMBIEN) [Concomitant]
  5. MEIATONIN (OTC) [Concomitant]
  6. AMLODIPINE [Concomitant]
  7. PRAVASTATIN (PRAVACHOL) [Concomitant]
  8. DOXAZOSIN (CARDURA) [Concomitant]
  9. FINASTERIDE (PROSCAR) [Concomitant]

REACTIONS (2)
  - Road traffic accident [None]
  - Sleep attacks [None]
